FAERS Safety Report 4878109-8 (Version None)
Quarter: 2006Q1

REPORT INFORMATION
  Report Type: 
  Country: None (occurrence: None)
  Receive Date: 20060110
  Receipt Date: 20060103
  Transmission Date: 20060701
  Serious: Yes (Other)
  Sender: FDA-Public Use
  Company Number: 28322

PATIENT
  Age: 92 Year
  Sex: Female

DRUGS (3)
  1. THEOPHYLLINE [Suspect]
     Indication: BRADYCARDIA
     Dosage: SEE IMAGE
     Route: 048
     Dates: start: 20050825
  2. NICORANDIL [Concomitant]
  3. ASPIRIN [Concomitant]

REACTIONS (1)
  - HALLUCINATION [None]
